FAERS Safety Report 25058839 (Version 1)
Quarter: 2025Q1

REPORT INFORMATION
  Report Type: Report from Study
  Country: US (occurrence: US)
  Receive Date: 20250310
  Receipt Date: 20250310
  Transmission Date: 20250409
  Serious: Yes (Other)
  Sender: BAYER HEALTHCARE LLC
  Company Number: US-BAYER-2025A030950

PATIENT

DRUGS (1)
  1. ALKA-SELTZER PLUS COLD AND FLU FIZZYCHEWS [Suspect]
     Active Substance: ACETAMINOPHEN\CHLORPHENIRAMINE MALEATE\DEXTROMETHORPHAN HYDROBROMIDE
     Route: 048

REACTIONS (2)
  - Choking [Unknown]
  - Cough [Unknown]
